FAERS Safety Report 19218590 (Version 18)
Quarter: 2021Q4

REPORT INFORMATION
  Report Type: Report from Study
  Country: KR (occurrence: None)
  Receive Date: 20210505
  Receipt Date: 20211124
  Transmission Date: 20220303
  Serious: Yes (Hospitalization)
  Sender: FDA-Public Use
  Company Number: KR-ROCHE-2819018

PATIENT
  Age: 90 Year
  Sex: Male
  Weight: 60 kg

DRUGS (88)
  1. TIRAGOLUMAB [Suspect]
     Active Substance: TIRAGOLUMAB
     Indication: Non-small cell lung cancer
     Dosage: START DATE OF MOST RECENT DOSE OF STUDY DRUG PRIOR TO AE: 02/DEC/2020.?START DATE OF MOST RECENT DOS
     Route: 042
     Dates: start: 20200819
  2. ATEZOLIZUMAB [Suspect]
     Active Substance: ATEZOLIZUMAB
     Indication: Non-small cell lung cancer
     Dosage: START DATE OF MOST RECENT DOSE OF STUDY DRUG PRIOR TO AE: 02/DEC/2020.?START DATE OF MOST RECENT DOS
     Route: 042
     Dates: start: 20200819
  3. DISTILLED WATER [Concomitant]
     Indication: Mucosal inflammation
     Route: 061
     Dates: start: 20210602
  4. AMARYL [Concomitant]
     Active Substance: GLIMEPIRIDE
     Indication: Type 2 diabetes mellitus
     Route: 048
     Dates: start: 2000
  5. BORYUNG BIO ASTRIX [Concomitant]
     Indication: Angina pectoris
     Route: 048
     Dates: start: 2010
  6. CRESTOR [Concomitant]
     Active Substance: ROSUVASTATIN CALCIUM
     Indication: Dyslipidaemia
     Route: 048
     Dates: start: 2010
  7. CRESTOR [Concomitant]
     Active Substance: ROSUVASTATIN CALCIUM
     Route: 048
     Dates: start: 20210424, end: 20210504
  8. PROPIVERINE [Concomitant]
     Active Substance: PROPIVERINE
     Indication: Benign prostatic hyperplasia
     Route: 048
     Dates: start: 2010
  9. CARDURA XL [Concomitant]
     Active Substance: DOXAZOSIN MESYLATE
     Indication: Benign prostatic hyperplasia
     Route: 048
     Dates: start: 2010
  10. DEXAMETHASONE [Concomitant]
     Active Substance: DEXAMETHASONE
     Indication: Premedication
     Route: 042
     Dates: start: 20200909
  11. PENIRAMIN [Concomitant]
     Indication: Premedication
     Route: 042
     Dates: start: 20200909, end: 20210112
  12. LACTULOSE [Concomitant]
     Active Substance: LACTULOSE
     Indication: Prophylaxis
     Route: 048
     Dates: start: 20210113, end: 20210202
  13. LACTULOSE [Concomitant]
     Active Substance: LACTULOSE
     Route: 048
     Dates: start: 20210203, end: 20210316
  14. MAGNESIUM OXIDE [Concomitant]
     Active Substance: MAGNESIUM OXIDE
     Indication: Constipation
     Route: 048
     Dates: start: 20210203, end: 20210516
  15. LAMINA-G [Concomitant]
     Indication: Oesophagitis
     Route: 048
     Dates: start: 20210224, end: 20210428
  16. DULCOLAX-S [Concomitant]
     Indication: Constipation
     Route: 048
     Dates: start: 20210322
  17. DULCOLAX-S [Concomitant]
     Route: 048
     Dates: start: 20210317, end: 20210516
  18. DULCOLAX-S [Concomitant]
     Dosage: 1 TABLET
     Route: 054
     Dates: start: 20210317, end: 20210516
  19. GASTER (SOUTH KOREA) [Concomitant]
     Indication: Gastritis
     Route: 048
     Dates: start: 20210311, end: 20210325
  20. GASTER (SOUTH KOREA) [Concomitant]
     Indication: Oesophagitis
     Route: 048
     Dates: start: 20210618
  21. GASTER (SOUTH KOREA) [Concomitant]
     Route: 042
     Dates: start: 20210901, end: 20210901
  22. GASTER (SOUTH KOREA) [Concomitant]
     Route: 042
     Dates: start: 20210902
  23. TANTUM [Concomitant]
     Active Substance: BENZYDAMINE HYDROCHLORIDE
     Indication: Oropharyngeal pain
     Route: 048
     Dates: start: 20210327
  24. LAFUTIDINE [Concomitant]
     Active Substance: LAFUTIDINE
     Indication: Oesophagitis
     Route: 048
     Dates: start: 20210407, end: 20210504
  25. DERMOTASONE MLE [Concomitant]
     Indication: Dermatitis acneiform
     Route: 061
     Dates: start: 20210311, end: 20210516
  26. SODIUM BICARBONATE [Concomitant]
     Active Substance: SODIUM BICARBONATE
     Indication: Oropharyngeal pain
     Route: 048
     Dates: start: 20210426, end: 20210516
  27. SODIUM BICARBONATE [Concomitant]
     Active Substance: SODIUM BICARBONATE
     Dosage: 160 OTHER
     Route: 042
     Dates: start: 20210827, end: 20210828
  28. SODIUM BICARBONATE [Concomitant]
     Active Substance: SODIUM BICARBONATE
     Route: 048
     Dates: start: 20210831
  29. KLENZO [Concomitant]
     Indication: Oropharyngeal pain
     Route: 048
     Dates: start: 20210426, end: 20210516
  30. KLENZO [Concomitant]
     Indication: Stomatitis
     Route: 042
     Dates: start: 20210831
  31. CRESTOR [Concomitant]
     Active Substance: ROSUVASTATIN CALCIUM
     Indication: Dyslipidaemia
     Route: 048
     Dates: start: 20210424, end: 20210504
  32. METFORMIN HYDROCHLORIDE [Concomitant]
     Active Substance: METFORMIN HYDROCHLORIDE
     Indication: Type 2 diabetes mellitus
     Route: 048
     Dates: start: 20210423, end: 20210504
  33. JANUVIA [Concomitant]
     Active Substance: SITAGLIPTIN PHOSPHATE
     Indication: Type 2 diabetes mellitus
     Route: 048
     Dates: start: 20210424, end: 20210504
  34. DISTILLED WATER [Concomitant]
     Indication: Oropharyngeal pain
     Route: 048
     Dates: start: 20210423, end: 20210427
  35. AMCILLIN [Concomitant]
     Indication: Oropharyngeal pain
     Route: 048
     Dates: start: 20210423, end: 20210427
  36. AMCILLIN [Concomitant]
     Indication: Mucosal inflammation
     Route: 048
     Dates: start: 20210602
  37. TAZOLACTAM [Concomitant]
     Indication: Infection
     Route: 042
     Dates: start: 20210425, end: 20210426
  38. TAZOLACTAM [Concomitant]
     Route: 042
     Dates: start: 20210827
  39. PORTALAC POWDER [Concomitant]
     Indication: Constipation
     Route: 048
     Dates: start: 20210425, end: 20210427
  40. PORTALAC POWDER [Concomitant]
     Route: 048
     Dates: start: 20210428, end: 20210516
  41. NEXIUM [Concomitant]
     Active Substance: ESOMEPRAZOLE MAGNESIUM
     Indication: Oesophagitis
     Route: 042
     Dates: start: 20210425, end: 20210426
  42. NEXIUM [Concomitant]
     Active Substance: ESOMEPRAZOLE MAGNESIUM
     Route: 042
     Dates: start: 20210425, end: 20210426
  43. PERIDEX OINTMENT [Concomitant]
     Indication: Stomatitis
     Route: 061
     Dates: start: 20210517
  44. MYPOL CAPSULES [Concomitant]
     Indication: Stomatitis
     Dosage: 1 OTHER
     Route: 048
     Dates: start: 20210517
  45. DIFLUCAN [Concomitant]
     Active Substance: FLUCONAZOLE
     Indication: Mucosal inflammation
     Route: 048
     Dates: start: 20210602
  46. LIDOCAINE [Concomitant]
     Active Substance: LIDOCAINE
     Indication: Mucosal inflammation
     Route: 061
     Dates: start: 20210602
  47. PLASMA SOLUTION A [Concomitant]
     Indication: Hypotension
     Route: 042
     Dates: start: 20210825, end: 20210825
  48. TAPOCIN [Concomitant]
     Indication: Pneumonia
     Route: 042
     Dates: start: 20210825, end: 20210825
  49. TAPOCIN [Concomitant]
     Route: 042
     Dates: start: 20210826, end: 20210826
  50. TAPOCIN [Concomitant]
     Route: 042
     Dates: start: 20210826, end: 20210826
  51. TAPOCIN [Concomitant]
     Route: 042
     Dates: start: 20210827
  52. TAPOCIN [Concomitant]
     Route: 042
     Dates: start: 20210831, end: 20210831
  53. TAPOCIN [Concomitant]
     Route: 042
     Dates: start: 20210828, end: 20210828
  54. LEVOFLOXACIN [Concomitant]
     Active Substance: LEVOFLOXACIN
     Indication: Pneumonia
     Route: 042
     Dates: start: 20210825, end: 20210825
  55. KEROMIN [Concomitant]
     Indication: Pneumonia
     Route: 042
     Dates: start: 20210825, end: 20210825
  56. AMINO ACIDS\DEXTROSE\ELECTROLYTES NOS\SOYBEAN OIL\VITAMINS [Concomitant]
     Active Substance: AMINO ACIDS\DEXTROSE\ELECTROLYTES NOS\SOYBEAN OIL\VITAMINS
     Route: 042
     Dates: start: 20210830
  57. HUMULIN R [Concomitant]
     Active Substance: INSULIN HUMAN
     Indication: Diabetes mellitus
     Dosage: 6 U
     Route: 058
     Dates: start: 20210827, end: 20210827
  58. HUMULIN R [Concomitant]
     Active Substance: INSULIN HUMAN
     Route: 058
     Dates: start: 20210828, end: 20210828
  59. HUMULIN R [Concomitant]
     Active Substance: INSULIN HUMAN
     Route: 058
     Dates: start: 20210828, end: 20210828
  60. HUMULIN R [Concomitant]
     Active Substance: INSULIN HUMAN
     Dosage: 8 U
     Route: 042
     Dates: start: 20210827, end: 20210830
  61. HUMULIN R [Concomitant]
     Active Substance: INSULIN HUMAN
     Dosage: 100 U
     Route: 042
     Dates: start: 20210827, end: 20210827
  62. HUMULIN R [Concomitant]
     Active Substance: INSULIN HUMAN
     Dosage: 16 U
     Route: 042
     Dates: start: 20210830, end: 20210901
  63. HUMULIN R [Concomitant]
     Active Substance: INSULIN HUMAN
     Dosage: 16 U
     Route: 042
     Dates: start: 20210831, end: 20210901
  64. HUMULIN R [Concomitant]
     Active Substance: INSULIN HUMAN
     Dosage: 26 U
     Route: 042
     Dates: start: 20210901, end: 20210902
  65. HUMULIN R [Concomitant]
     Active Substance: INSULIN HUMAN
     Dosage: 12 U
     Route: 042
     Dates: start: 20210830, end: 20210830
  66. HUMULIN R [Concomitant]
     Active Substance: INSULIN HUMAN
     Dosage: 4 U
     Route: 042
     Dates: start: 20210827, end: 20210827
  67. HUMULIN R [Concomitant]
     Active Substance: INSULIN HUMAN
     Route: 042
     Dates: start: 20210830, end: 20210830
  68. HUMULIN R [Concomitant]
     Active Substance: INSULIN HUMAN
     Dosage: 8 U
     Route: 058
     Dates: start: 20210901, end: 20210901
  69. LANTUS [Concomitant]
     Active Substance: INSULIN GLARGINE
     Indication: Diabetes mellitus
     Route: 058
     Dates: start: 20210829, end: 20210829
  70. LANTUS [Concomitant]
     Active Substance: INSULIN GLARGINE
     Dosage: 12 U
     Route: 058
     Dates: start: 20210828, end: 20210828
  71. NORPINE [Concomitant]
     Indication: Hypotension
     Route: 042
     Dates: start: 20210825, end: 20210825
  72. NORPINE [Concomitant]
     Route: 042
     Dates: start: 20210825, end: 20210831
  73. VASOPRESSIN [Concomitant]
     Active Substance: VASOPRESSIN
     Indication: Hypotension
     Dosage: 60 U
     Route: 042
     Dates: start: 20210825, end: 20210826
  74. MUCOMYST [Concomitant]
     Active Substance: ACETYLCYSTEINE
     Indication: Pneumonia
     Route: 042
     Dates: start: 20210830
  75. METHYLPREDNISOLONE SODIUM SUCCINATE [Concomitant]
     Active Substance: METHYLPREDNISOLONE SODIUM SUCCINATE
     Indication: Pneumonia
     Route: 042
     Dates: start: 20210825, end: 20210825
  76. METHYLPREDNISOLONE SODIUM SUCCINATE [Concomitant]
     Active Substance: METHYLPREDNISOLONE SODIUM SUCCINATE
     Route: 042
     Dates: start: 20210826, end: 20210828
  77. METHYLPREDNISOLONE SODIUM SUCCINATE [Concomitant]
     Active Substance: METHYLPREDNISOLONE SODIUM SUCCINATE
     Route: 042
     Dates: start: 20210829
  78. PROFA [Concomitant]
     Indication: Pyrexia
     Route: 042
     Dates: start: 20210825, end: 20210825
  79. LASIX [Concomitant]
     Active Substance: FUROSEMIDE
     Indication: Urine output decreased
     Route: 042
     Dates: start: 20210827, end: 20210827
  80. LASIX [Concomitant]
     Active Substance: FUROSEMIDE
     Indication: Acute kidney injury
     Route: 042
     Dates: start: 20210827, end: 20210827
  81. LASIX [Concomitant]
     Active Substance: FUROSEMIDE
     Route: 042
     Dates: start: 20210827, end: 20210827
  82. LASIX [Concomitant]
     Active Substance: FUROSEMIDE
     Route: 042
     Dates: start: 20210901, end: 20210901
  83. HEPA-MERZ INFUSION [Concomitant]
     Indication: Aspartate aminotransferase increased
     Route: 042
     Dates: start: 20210831
  84. HEPA-MERZ INFUSION [Concomitant]
     Indication: Alanine aminotransferase increased
  85. ATIVAN [Concomitant]
     Active Substance: LORAZEPAM
     Indication: Delirium
     Route: 042
     Dates: start: 20210901
  86. PANTOPRAZOLE SODIUM [Concomitant]
     Active Substance: PANTOPRAZOLE SODIUM
     Route: 042
     Dates: start: 20210829, end: 20210901
  87. TAZOPERAN [Concomitant]
     Indication: Pneumonia
     Dates: start: 20210825, end: 20210826
  88. HUMALOG [Concomitant]
     Active Substance: INSULIN LISPRO
     Dates: start: 20210901, end: 20210901

REACTIONS (1)
  - Dermatitis acneiform [Not Recovered/Not Resolved]

NARRATIVE: CASE EVENT DATE: 20201223
